FAERS Safety Report 6617043-X (Version None)
Quarter: 2010Q1

REPORT INFORMATION
  Report Type: 
  Country: None (occurrence: None)
  Receive Date: 20100306
  Receipt Date: 20100115
  Transmission Date: 20100710
  Serious: Yes (Other)
  Sender: FDA-Public Use
  Company Number: FR-JNJFOC-20100206844

PATIENT
  Age: 80 Year
  Sex: Male

DRUGS (11)
  1. LEVOFLOXACIN [Suspect]
     Indication: DRUG USE FOR UNKNOWN INDICATION
     Route: 048
     Dates: start: 20090930, end: 20091029
  2. RIFAMPICIN [Suspect]
     Indication: DRUG USE FOR UNKNOWN INDICATION
     Route: 048
  3. BISOPROLOL FUMARATE [Concomitant]
  4. DIGOXIN [Concomitant]
  5. ENOXAPARIN SODIUM [Concomitant]
  6. HALOPERIDOL DECANOATE [Concomitant]
  7. CYANOCOBALAMIN [Concomitant]
  8. TIANEPTINE [Concomitant]
  9. PARACETAMOL [Concomitant]
  10. FINASTERIDE [Concomitant]
  11. MACROGOL [Concomitant]

REACTIONS (1)
  - WEIGHT DECREASED [None]
